FAERS Safety Report 5040360-4 (Version None)
Quarter: 2006Q2

REPORT INFORMATION
  Report Type: 
  Country: None (occurrence: None)
  Receive Date: 20060630
  Receipt Date: 20060626
  Transmission Date: 20061013
  Serious: Yes (Other)
  Sender: FDA-Public Use
  Company Number: US-GLAXOSMITHKLINE-A0610300A

PATIENT
  Age: 34 Year
  Sex: Female

DRUGS (9)
  1. GOODY'S EXTRA STRENGTH HEADACHE POWDER [Suspect]
     Indication: HEADACHE
  2. GOODY'S PM POWDER [Suspect]
     Indication: HEADACHE
  3. IMITREX [Concomitant]
  4. LORCET-HD [Concomitant]
  5. SOMA [Concomitant]
  6. DIOVAN [Concomitant]
  7. PEPCID [Concomitant]
  8. COREG [Concomitant]
  9. METOPROLOL TARTRATE [Concomitant]

REACTIONS (4)
  - DEPENDENCE [None]
  - DYSPEPSIA [None]
  - HYPERTENSION [None]
  - RECTAL HAEMORRHAGE [None]
